FAERS Safety Report 5859739-3 (Version None)
Quarter: 2008Q3

REPORT INFORMATION
  Report Type: 
  Country: None (occurrence: None)
  Receive Date: 20080827
  Receipt Date: 20080825
  Transmission Date: 20090109
  Serious: Yes (Hospitalization)
  Sender: FDA-Public Use
  Company Number: US-BAYER-200812363BCC

PATIENT
  Age: 66 Year
  Sex: Male
  Weight: 103 kg

DRUGS (11)
  1. ALKA-SELTZER ORIGINAL EFFERVECENT TABLETS [Suspect]
     Indication: DYSPEPSIA
     Route: 048
     Dates: start: 19680101
  2. DULCOLAX [Concomitant]
  3. DULCOLAX [Concomitant]
  4. POTASSIUM CHLORIDE [Concomitant]
  5. LASIX [Concomitant]
  6. XANAX [Concomitant]
  7. METOLAZONE [Concomitant]
  8. KLOR-CON [Concomitant]
  9. SPIRONOLACTONE [Concomitant]
  10. RANITIDINE [Concomitant]
  11. LEXAPRO [Concomitant]

REACTIONS (4)
  - CARDIAC SEPTAL DEFECT [None]
  - FAECES HARD [None]
  - HERNIA [None]
  - MYOCARDIAL INFARCTION [None]
